FAERS Safety Report 8443030-5 (Version None)
Quarter: 2012Q2

REPORT INFORMATION
  Report Type: 
  Country: None (occurrence: None)
  Receive Date: 20120615
  Receipt Date: 20120612
  Transmission Date: 20120825
  Serious: Yes (Hospitalization)
  Sender: FDA-Public Use
  Company Number: PHHO2011FR020915

PATIENT
  Sex: Female
  Weight: 32 kg

DRUGS (6)
  1. METHOTREXATE [Suspect]
     Indication: BONE SARCOMA
     Dosage: 13.3 G, UNK
     Route: 042
     Dates: start: 20111105
  2. ETOPOSIDE [Suspect]
     Indication: BONE SARCOMA
     Dosage: 33.6 MG, UNK
     Route: 042
     Dates: start: 20111128
  3. IFOSFAMIDE [Suspect]
     Dosage: 132.8 G, UNK
     Route: 042
     Dates: start: 20111128
  4. VITAMIN D [Concomitant]
     Indication: PROPHYLAXIS
     Dosage: UNK
     Route: 048
     Dates: start: 20111107
  5. CALCIUM [Concomitant]
     Indication: PROPHYLAXIS
     Dosage: UNK
     Route: 048
     Dates: start: 20111107
  6. NO TREATMENT RECEIVED [Suspect]
     Indication: BONE SARCOMA
     Dosage: NO TREATMENT

REACTIONS (3)
  - COLITIS [None]
  - PNEUMOTHORAX [None]
  - FEBRILE BONE MARROW APLASIA [None]
